FAERS Safety Report 13603586 (Version 1)
Quarter: 2017Q2

REPORT INFORMATION
  Report Type: Spontaneous
  Country: US (occurrence: US)
  Receive Date: 20170601
  Receipt Date: 20170601
  Transmission Date: 20170830
  Serious: No
  Sender: FDA-Public Use
  Company Number: US-AMGEN-USASP2017081641

PATIENT
  Age: 52 Year
  Sex: Male
  Weight: 98.87 kg

DRUGS (1)
  1. ENBREL [Suspect]
     Active Substance: ETANERCEPT
     Indication: PSORIATIC ARTHROPATHY
     Dosage: 50 MG, QWK
     Route: 058
     Dates: start: 201608

REACTIONS (2)
  - Malaise [Not Recovered/Not Resolved]
  - Drug effect variable [Unknown]

NARRATIVE: CASE EVENT DATE: 201703
